FAERS Safety Report 18019735 (Version 1)
Quarter: 2020Q3

REPORT INFORMATION
  Report Type: Report from Study
  Country: CA (occurrence: CA)
  Receive Date: 20200714
  Receipt Date: 20200714
  Transmission Date: 20201103
  Serious: Yes (Hospitalization, Other)
  Sender: FDA-Public Use
  Company Number: CA-REGENERON PHARMACEUTICALS, INC.-2018-35363

PATIENT

DRUGS (1)
  1. EYLEA [Suspect]
     Active Substance: AFLIBERCEPT
     Indication: DIABETIC RETINAL OEDEMA
     Dosage: UNKNOWN DOSE, FREQUENCY, SITE AND TOTAL NUMBER OF INJECTIONS
     Route: 031
     Dates: start: 20180821

REACTIONS (2)
  - Hospitalisation [Unknown]
  - Blindness [Unknown]
